FAERS Safety Report 7067604-1 (Version None)
Quarter: 2010Q4

REPORT INFORMATION
  Report Type: 
  Country: None (occurrence: None)
  Receive Date: 20101028
  Receipt Date: 20101026
  Transmission Date: 20110411
  Serious: Yes (Hospitalization, Other)
  Sender: FDA-Public Use
  Company Number: IT-BRISTOL-MYERS SQUIBB COMPANY-15337660

PATIENT
  Age: 83 Year
  Sex: Male

DRUGS (4)
  1. COUMADIN [Suspect]
     Indication: DEEP VEIN THROMBOSIS
     Route: 048
     Dates: start: 20100731, end: 20100917
  2. RAMIPRIL [Concomitant]
     Route: 048
  3. SIMVASTATIN [Concomitant]
     Route: 048
  4. CARVEDILOL [Concomitant]
     Route: 048

REACTIONS (3)
  - CEREBRAL HAEMORRHAGE [None]
  - COGNITIVE DISORDER [None]
  - HEAD INJURY [None]
